FAERS Safety Report 6097327-7 (Version None)
Quarter: 2009Q1

REPORT INFORMATION
  Report Type: 
  Country: None (occurrence: None)
  Receive Date: 20090226
  Receipt Date: 20090226
  Transmission Date: 20090719
  Serious: Yes (Other)
  Sender: FDA-Public Use
  Company Number: None

PATIENT
  Age: 45 Year
  Sex: Female
  Weight: 53.0709 kg

DRUGS (2)
  1. EFFEXOR XR [Suspect]
     Indication: DEPRESSION
     Dosage: 37.5 MG ONCE A DAILY PO
     Route: 048
     Dates: start: 20090131, end: 20090213
  2. EFFEXOR XR [Suspect]
     Dosage: 75 MG ONCE A DAILY PO
     Route: 048
     Dates: start: 20090110, end: 20090130

REACTIONS (13)
  - ASTHENIA [None]
  - DECREASED ACTIVITY [None]
  - DIARRHOEA [None]
  - DIZZINESS [None]
  - DRUG WITHDRAWAL SYNDROME [None]
  - IMPAIRED DRIVING ABILITY [None]
  - INJURY [None]
  - NAUSEA [None]
  - SUICIDAL IDEATION [None]
  - TINNITUS [None]
  - TREMOR [None]
  - VERTIGO [None]
  - VOMITING [None]
